FAERS Safety Report 7627331-6 (Version None)
Quarter: 2011Q3

REPORT INFORMATION
  Report Type: 
  Country: None (occurrence: None)
  Receive Date: 20110721
  Receipt Date: 20110516
  Transmission Date: 20111222
  Serious: No
  Sender: FDA-Public Use
  Company Number: US-BAYER-2011-043424

PATIENT
  Sex: Female
  Weight: 47.619 kg

DRUGS (2)
  1. ALEVE (CAPLET) [Suspect]
     Indication: MUSCLE STRAIN
     Dosage: 2 DF, QD, BOTTLE COUNT 24S
     Route: 048
     Dates: start: 20110513, end: 20110513
  2. ALEVE (CAPLET) [Suspect]
     Dosage: 1 DF, QD, BOTTLE COUNT 24S
     Route: 048
     Dates: start: 20110514, end: 20110515

REACTIONS (1)
  - MUSCLE STRAIN [None]
